FAERS Safety Report 21992400 (Version 3)
Quarter: 2023Q1

REPORT INFORMATION
  Report Type: Spontaneous
  Country: US (occurrence: US)
  Receive Date: 20230215
  Receipt Date: 20230316
  Transmission Date: 20230418
  Serious: Yes (Hospitalization, Other)
  Sender: FDA-Public Use
  Company Number: US-UNITED THERAPEUTICS-UNT-2023-002936

PATIENT
  Age: 42 Year
  Sex: Female
  Weight: 61.224 kg

DRUGS (12)
  1. TYVASO [Suspect]
     Active Substance: TREPROSTINIL
     Indication: Pulmonary arterial hypertension
     Dosage: 18 ?G, QID
  2. ORENITRAM [Suspect]
     Active Substance: TREPROSTINIL
     Indication: Pulmonary arterial hypertension
     Dosage: 0.125 MG, BID
     Route: 048
  3. ORENITRAM [Suspect]
     Active Substance: TREPROSTINIL
     Dosage: 0.25 MG, BID
     Route: 048
  4. ORENITRAM [Suspect]
     Active Substance: TREPROSTINIL
     Dosage: UNK
     Route: 048
     Dates: start: 20221230
  5. ORENITRAM [Suspect]
     Active Substance: TREPROSTINIL
     Indication: Pulmonary arterial hypertension
     Dosage: UNK
     Route: 048
  6. ORENITRAM [Suspect]
     Active Substance: TREPROSTINIL
     Indication: Pulmonary arterial hypertension
     Dosage: UNK
     Route: 048
  7. VELETRI [Suspect]
     Active Substance: EPOPROSTENOL
     Indication: Product used for unknown indication
     Dosage: UNK
     Route: 065
  8. VELETRI [Suspect]
     Active Substance: EPOPROSTENOL
     Dosage: 0.008 ?G/KG, CONTINUING (DOSE DECREASED)
     Route: 065
  9. VELETRI [Suspect]
     Active Substance: EPOPROSTENOL
     Dosage: DECREASED DOSE TO 56 RATE AND ONE 1.5 MG VIAL A DAY
     Route: 065
  10. VELETRI [Suspect]
     Active Substance: EPOPROSTENOL
     Dosage: DECREASING RATE FROM 70 TO 56 MILLILITERS PER DAY
     Route: 065
  11. ELIQUIS [Concomitant]
     Active Substance: APIXABAN
     Indication: Product used for unknown indication
     Dosage: UNK
     Route: 065
  12. ADEMPAS [Concomitant]
     Active Substance: RIOCIGUAT
     Indication: Product used for unknown indication
     Dosage: UNK
     Route: 065

REACTIONS (13)
  - Cardiac failure [Unknown]
  - Headache [Unknown]
  - Flushing [Unknown]
  - Seizure [Unknown]
  - Loss of consciousness [Recovered/Resolved]
  - Neuropathy peripheral [Not Recovered/Not Resolved]
  - Joint swelling [Unknown]
  - Illness [Unknown]
  - Speech disorder [Unknown]
  - Pain [Unknown]
  - Fatigue [Unknown]
  - Migraine [Unknown]
  - Injection site haemorrhage [Unknown]

NARRATIVE: CASE EVENT DATE: 20221230
